FAERS Safety Report 6940070-X (Version None)
Quarter: 2010Q3

REPORT INFORMATION
  Report Type: 
  Country: None (occurrence: None)
  Receive Date: 20100825
  Receipt Date: 20100818
  Transmission Date: 20110219
  Serious: Yes (Hospitalization, Other)
  Sender: FDA-Public Use
  Company Number: US-RB-014321-10

PATIENT
  Age: 43 Year
  Sex: Female

DRUGS (3)
  1. SUBOXONE [Suspect]
     Dosage: UNIT DOSE KNOWN, FREQUENCY AND DAILY DOSE UNKNOWN
     Route: 060
     Dates: start: 20080101, end: 20090101
  2. SUBOXONE [Suspect]
     Indication: DRUG DEPENDENCE
     Dosage: VARIED DOSES
     Route: 060
     Dates: start: 20100801
  3. PAIN MEDICATION [Suspect]
     Indication: PRODUCT USED FOR UNKNOWN INDICATION
     Dosage: UNKNOWN DOSING DETAILS
     Route: 065

REACTIONS (5)
  - ASPIRATION [None]
  - BACK INJURY [None]
  - BACK PAIN [None]
  - DRUG WITHDRAWAL SYNDROME [None]
  - GASTROINTESTINAL DISORDER [None]
